FAERS Safety Report 15843834 (Version 1)
Quarter: 2019Q1

REPORT INFORMATION
  Report Type: Spontaneous
  Country: CH (occurrence: CH)
  Receive Date: 20190118
  Receipt Date: 20190118
  Transmission Date: 20190417
  Serious: Yes (Hospitalization)
  Sender: FDA-Public Use
  Company Number: CH-009507513-1901CHE005008

PATIENT
  Age: 25 Year
  Sex: Male
  Weight: 62 kg

DRUGS (11)
  1. DALMADORM [Concomitant]
     Active Substance: FLURAZEPAM HYDROCHLORIDE
     Dosage: 15 MILLIGRAM, QD
     Route: 048
  2. PANTOZOL [Concomitant]
     Active Substance: PANTOPRAZOLE SODIUM
     Dosage: 4 MG QD
     Route: 048
  3. QUETIAPINE FUMARATE. [Concomitant]
     Active Substance: QUETIAPINE FUMARATE
     Dosage: 25 MILLIGRAM, BID
     Route: 048
  4. SERESTA [Concomitant]
     Active Substance: OXAZEPAM
     Dosage: 0.5 DOSAGE FORM, BID
     Route: 048
  5. ROCEPHIN [Suspect]
     Active Substance: CEFTRIAXONE SODIUM
     Indication: FRACTURE
     Route: 041
     Dates: start: 20180903, end: 20181218
  6. REMERON [Concomitant]
     Active Substance: MIRTAZAPINE
     Dosage: 30 MILLIGRAM, QD
     Route: 048
  7. BENERVA [Concomitant]
     Active Substance: THIAMINE HYDROCHLORIDE
     Dosage: 300 MILLIGRAM, QD
     Route: 048
  8. BECOZYME [Concomitant]
     Active Substance: VITAMINS
     Dosage: 1 DOSAGE FORM, QD
     Route: 048
  9. CUBICIN [Suspect]
     Active Substance: DAPTOMYCIN
     Indication: FRACTURE
     Dosage: 500 MILLIGRAM, QD
     Route: 041
     Dates: start: 20180820, end: 20181218
  10. CLAMOXYL [Concomitant]
     Dosage: SWITCH FOR SIMPLIFICATION
     Dates: start: 20180820, end: 20180903
  11. PREGABALIN. [Concomitant]
     Active Substance: PREGABALIN
     Dosage: 75 MILLIGRAM, BID
     Route: 048

REACTIONS (1)
  - Cholelithiasis [Recovering/Resolving]

NARRATIVE: CASE EVENT DATE: 201811
